FAERS Safety Report 6573050-7 (Version None)
Quarter: 2010Q1

REPORT INFORMATION
  Report Type: 
  Country: None (occurrence: None)
  Receive Date: 20100208
  Receipt Date: 20100125
  Transmission Date: 20100710
  Serious: Yes (Other)
  Sender: FDA-Public Use
  Company Number: FR-BAYER-200942910GPV

PATIENT
  Age: 33 Year
  Sex: Female

DRUGS (1)
  1. YAZ [Suspect]
     Indication: CONTRACEPTION
     Route: 048
     Dates: start: 20090501, end: 20091101

REACTIONS (8)
  - ACNE [None]
  - ANXIETY [None]
  - LIBIDO DISORDER [None]
  - MUSCLE SPASMS [None]
  - NECK PAIN [None]
  - NERVOUS SYSTEM DISORDER [None]
  - PANIC ATTACK [None]
  - SUICIDAL IDEATION [None]
